FAERS Safety Report 23717558 (Version 1)
Quarter: 2024Q2

REPORT INFORMATION
  Report Type: Spontaneous
  Country: US (occurrence: None)
  Receive Date: 20240405
  Receipt Date: 20240405
  Transmission Date: 20240716
  Serious: No
  Sender: FDA-Public Use
  Company Number: None

PATIENT
  Age: 32 Year
  Sex: Male
  Weight: 78.75 kg

DRUGS (4)
  1. LEVAQUIN [Suspect]
     Active Substance: LEVOFLOXACIN
     Indication: Sinusitis
     Dates: start: 20240211, end: 20240211
  2. LEVAQUIN [Suspect]
     Active Substance: LEVOFLOXACIN
     Indication: Pseudomonas infection
  3. AZELASTINE [Concomitant]
     Active Substance: AZELASTINE\AZELASTINE HYDROCHLORIDE
  4. claritin [Concomitant]

REACTIONS (1)
  - Tendonitis [None]

NARRATIVE: CASE EVENT DATE: 20240211
